FAERS Safety Report 7689261-3 (Version None)
Quarter: 2011Q3

REPORT INFORMATION
  Report Type: 
  Country: None (occurrence: None)
  Receive Date: 20110817
  Receipt Date: 20110810
  Transmission Date: 20111222
  Serious: Yes (Hospitalization)
  Sender: FDA-Public Use
  Company Number: US-GILEAD-2011-0042776

PATIENT
  Sex: Male
  Weight: 68.1 kg

DRUGS (8)
  1. MARAVIROC [Suspect]
     Indication: HIV INFECTION
     Dates: start: 20110723
  2. TRUVADA [Suspect]
     Route: 048
     Dates: start: 20110513, end: 20110721
  3. TRUVADA [Suspect]
     Indication: HIV INFECTION
     Route: 048
     Dates: start: 20110723
  4. RITONAVIR [Suspect]
     Indication: HIV INFECTION
     Dates: start: 20110723
  5. RITONAVIR [Suspect]
     Dates: start: 20110513, end: 20110721
  6. MARAVIROC [Suspect]
     Dates: start: 20110513, end: 20110721
  7. ATAZANAVIR [Suspect]
     Indication: HIV INFECTION
     Dates: start: 20110723
  8. ATAZANAVIR [Suspect]
     Dates: start: 20110513, end: 20110721

REACTIONS (1)
  - COLITIS [None]
